FAERS Safety Report 5482119-X (Version None)
Quarter: 2007Q4

REPORT INFORMATION
  Report Type: 
  Country: None (occurrence: None)
  Receive Date: 20071011
  Receipt Date: 20071003
  Transmission Date: 20080405
  Serious: Yes (Other)
  Sender: FDA-Public Use
  Company Number: CH-JNJFOC-20070901619

PATIENT
  Sex: Male

DRUGS (2)
  1. REMICADE [Suspect]
     Indication: UVEITIS
     Route: 042
  2. CYCLOSPORINE [Concomitant]

REACTIONS (1)
  - COAGULATION FACTOR VIII LEVEL DECREASED [None]
